FAERS Safety Report 9315267 (Version 1)
Quarter: 2013Q2

REPORT INFORMATION
  Report Type: Spontaneous
  Country: IN (occurrence: IN)
  Receive Date: 20130529
  Receipt Date: 20130529
  Transmission Date: 20140414
  Serious: Yes (Hospitalization, Other)
  Sender: FDA-Public Use
  Company Number: IN-BAYER-2013-065345

PATIENT
  Age: 19 Year
  Sex: Male

DRUGS (1)
  1. ACETYLSALICYLIC ACID({=100 MG) [Suspect]

REACTIONS (3)
  - Kounis syndrome [Recovered/Resolved]
  - Analgesic asthma syndrome [None]
  - Analgesic asthma syndrome [None]
